FAERS Safety Report 16205864 (Version 2)
Quarter: 2019Q2

REPORT INFORMATION
  Report Type: Spontaneous
  Country: PT (occurrence: PT)
  Receive Date: 20190417
  Receipt Date: 20190506
  Transmission Date: 20190711
  Serious: Yes (Other)
  Sender: FDA-Public Use
  Company Number: PT-AMGEN-PRTSP2019060176

PATIENT
  Age: 76 Year
  Sex: Female
  Weight: 61 kg

DRUGS (1)
  1. KYPROLIS [Suspect]
     Active Substance: CARFILZOMIB
     Indication: PLASMA CELL MYELOMA
     Dosage: 70 MILLIGRAM/SQ. METER, QWK (56 MG/M2 WEEKLY; DILUTION IN 50 ML OF GLUCOSE 5%, ADMINISTRATED FOR 30
     Route: 042
     Dates: start: 20190218

REACTIONS (4)
  - Vomiting [Recovered/Resolved]
  - Renal injury [Recovering/Resolving]
  - Pyrexia [Recovered/Resolved]
  - Diarrhoea [Recovered/Resolved]

NARRATIVE: CASE EVENT DATE: 20190304
